FAERS Safety Report 5705268-7 (Version None)
Quarter: 2008Q2

REPORT INFORMATION
  Report Type: 
  Country: None (occurrence: None)
  Receive Date: 20080411
  Receipt Date: 20080405
  Transmission Date: 20081010
  Serious: Yes (Other)
  Sender: FDA-Public Use
  Company Number: CHPA2008US06181

PATIENT
  Age: 84 Year
  Sex: Male

DRUGS (4)
  1. BENEFIBER W/ WHEAT DEXTRIN (NCH)(WHEAT DEXTRIN) POWDER [Suspect]
     Indication: CONSTIPATION
     Dosage: 12 TSP, BID, ORAL; 2 TSP AFTER EVERY MEAL ORAL
     Route: 048
     Dates: start: 20080403, end: 20080404
  2. PROCTOSOLL (BENZOCAINE, HEPARIN SODIUM, HYDROCORTISONE ACETATE) CREAM [Concomitant]
  3. EYE DROPS (TETRYZOLINE HYDROCHLORIDE) [Concomitant]
  4. HYDROCORTISONE ACETATE SUPPOSITORY [Concomitant]

REACTIONS (2)
  - OVERDOSE [None]
  - RECTAL HAEMORRHAGE [None]
